FAERS Safety Report 5341155-4 (Version None)
Quarter: 2007Q2

REPORT INFORMATION
  Report Type: 
  Country: None (occurrence: None)
  Receive Date: 20070405
  Receipt Date: 20070109
  Transmission Date: 20071010
  Serious: No
  Sender: FDA-Public Use
  Company Number: US200701001694

PATIENT
  Age: 42 Year
  Sex: Female

DRUGS (3)
  1. CYMBALTA [Suspect]
     Dosage: 60 MG, DAILY (1/D), ORAL
     Route: 048
     Dates: start: 20060101, end: 20070101
  2. TYLENOL /USA/ (PARACETAMOL) [Concomitant]
  3. ADVIL [Concomitant]

REACTIONS (16)
  - ADJUSTMENT DISORDER [None]
  - BALANCE DISORDER [None]
  - CONFUSIONAL STATE [None]
  - CRYING [None]
  - DEPRESSED MOOD [None]
  - DIZZINESS [None]
  - ECONOMIC PROBLEM [None]
  - GAIT DISTURBANCE [None]
  - HEADACHE [None]
  - IRRITABILITY [None]
  - LOSS OF EMPLOYMENT [None]
  - NAUSEA [None]
  - NIGHTMARE [None]
  - SUICIDAL IDEATION [None]
  - TINNITUS [None]
  - VISUAL DISTURBANCE [None]
